FAERS Safety Report 7991414-1 (Version None)
Quarter: 2011Q4

REPORT INFORMATION
  Report Type: 
  Country: None (occurrence: None)
  Receive Date: 20111219
  Receipt Date: 20111214
  Transmission Date: 20120403
  Serious: Yes (Other)
  Sender: FDA-Public Use
  Company Number: JP-JNJFOC-20111207416

PATIENT
  Age: 78 Year
  Sex: Female

DRUGS (2)
  1. KENACORT-A OPHTHALMIC OINTMENT [Suspect]
     Indication: PRODUCT USED FOR UNKNOWN INDICATION
     Route: 014
  2. SIMPONI [Suspect]
     Indication: PRODUCT USED FOR UNKNOWN INDICATION
     Route: 058
     Dates: start: 20111212

REACTIONS (1)
  - TACHYCARDIA [None]
